FAERS Safety Report 19009052 (Version 1)
Quarter: 2021Q1

REPORT INFORMATION
  Report Type: Spontaneous
  Country: SE (occurrence: SE)
  Receive Date: 20210315
  Receipt Date: 20210315
  Transmission Date: 20210420
  Serious: Yes (Other)
  Sender: FDA-Public Use
  Company Number: SE-TEVA-2021-SE-1890171

PATIENT
  Age: 32 Year
  Sex: Female

DRUGS (5)
  1. SUMATRIPTAN. [Concomitant]
     Active Substance: SUMATRIPTAN
     Dates: start: 20170613
  2. AJOVY [Suspect]
     Active Substance: FREMANEZUMAB-VFRM
     Indication: MIGRAINE
     Dosage: 225 MG 1 INJEKTION/MANAD
     Route: 058
     Dates: start: 20201209
  3. ALMOGRAN [Concomitant]
     Active Substance: ALMOTRIPTAN MALATE
     Dates: start: 20180104
  4. MIRTAZAPINE. [Concomitant]
     Active Substance: MIRTAZAPINE
     Dates: start: 2017
  5. MELATONIN [Concomitant]
     Active Substance: MELATONIN
     Dates: start: 2017

REACTIONS (3)
  - Fatigue [Recovered/Resolved]
  - Cold sweat [Recovered/Resolved]
  - Nausea [Recovered/Resolved]

NARRATIVE: CASE EVENT DATE: 202012
